FAERS Safety Report 8986249 (Version 1)
Quarter: 2012Q4

REPORT INFORMATION
  Report Type: Spontaneous
  Country: YU (occurrence: None)
  Receive Date: 20121217
  Receipt Date: 20121217
  Transmission Date: 20130627
  Serious: Yes (Hospitalization)
  Sender: FDA-Public Use
  Company Number: NSR_00739_2012

PATIENT
  Age: 24 Year
  Sex: Female

DRUGS (1)
  1. TRAMADOL [Suspect]
     Dosage: 1X, (Not the prescribed dose) )

REACTIONS (5)
  - Suicide attempt [None]
  - Somnolence [None]
  - Hypotension [None]
  - Grand mal convulsion [None]
  - Toxicity to various agents [None]
